FAERS Safety Report 6829746-2 (Version None)
Quarter: 2010Q3

REPORT INFORMATION
  Report Type: 
  Country: None (occurrence: None)
  Receive Date: 20100709
  Receipt Date: 20071106
  Transmission Date: 20110219
  Serious: Yes (Other)
  Sender: FDA-Public Use
  Company Number: US-PFIZER INC-2007019977

PATIENT
  Sex: Female
  Weight: 108.9 kg

DRUGS (6)
  1. CHANTIX [Suspect]
     Indication: SMOKING CESSATION THERAPY
     Route: 048
     Dates: start: 20060101, end: 20070201
  2. SYNTHROID [Concomitant]
     Indication: THYROID DISORDER
  3. DEPAKOTE [Concomitant]
     Indication: MIGRAINE
  4. KLONOPIN [Concomitant]
     Indication: SLEEP DISORDER
  5. BENADRYL [Concomitant]
     Indication: SLEEP DISORDER
  6. PERCOCET [Concomitant]

REACTIONS (6)
  - ABDOMINAL DISCOMFORT [None]
  - BLOOD THYROID STIMULATING HORMONE INCREASED [None]
  - HEADACHE [None]
  - MALAISE [None]
  - NAUSEA [None]
  - VOMITING [None]
